FAERS Safety Report 4835234-5 (Version None)
Quarter: 2005Q4

REPORT INFORMATION
  Report Type: 
  Country: None (occurrence: None)
  Receive Date: 20051122
  Receipt Date: 20051004
  Transmission Date: 20060501
  Serious: Yes (Hospitalization, Other)
  Sender: FDA-Public Use
  Company Number: US-MERCK-0510USA03046

PATIENT
  Age: 43 Year
  Sex: Male
  Weight: 80 kg

DRUGS (18)
  1. VIOXX [Suspect]
     Indication: PAIN IN EXTREMITY
     Route: 048
     Dates: start: 19990101, end: 20050101
  2. VIOXX [Suspect]
     Route: 048
     Dates: start: 19990101, end: 20050101
  3. VIOXX [Suspect]
     Indication: BACK PAIN
     Route: 048
     Dates: start: 19990101, end: 20050101
  4. VIOXX [Suspect]
     Route: 048
     Dates: start: 19990101, end: 20050101
  5. LORCET-HD [Concomitant]
     Route: 048
  6. PRILOSEC [Concomitant]
     Route: 065
  7. VALIUM [Concomitant]
     Route: 065
  8. ASPIRIN [Concomitant]
     Route: 065
  9. MOBIC [Concomitant]
     Route: 065
  10. WELLBUTRIN [Concomitant]
     Route: 065
  11. TENORMIN [Concomitant]
     Route: 065
  12. LIPITOR [Concomitant]
     Route: 065
  13. LASIX [Concomitant]
     Route: 065
  14. IBUTEROL [Concomitant]
     Route: 065
  15. CYTOTEC [Concomitant]
     Route: 048
  16. VITAMIN E [Concomitant]
     Route: 065
  17. ASCORBIC ACID [Concomitant]
     Route: 065
  18. ZANTAC [Concomitant]
     Route: 048

REACTIONS (28)
  - ACUTE MYOCARDIAL INFARCTION [None]
  - ANGINA PECTORIS [None]
  - ASTHMA [None]
  - ATELECTASIS [None]
  - BRONCHITIS ACUTE [None]
  - BRONCHOSPASM [None]
  - CARDIOMEGALY [None]
  - CAROTID ARTERY STENOSIS [None]
  - CHRONIC OBSTRUCTIVE PULMONARY DISEASE [None]
  - CORONARY ARTERY DISEASE [None]
  - CORONARY ARTERY OCCLUSION [None]
  - CORONARY ARTERY REOCCLUSION [None]
  - DEPRESSION [None]
  - DRUG INEFFECTIVE [None]
  - EJECTION FRACTION DECREASED [None]
  - ESSENTIAL HYPERTENSION [None]
  - FLUID OVERLOAD [None]
  - HYPERCHOLESTEROLAEMIA [None]
  - HYPOXIA [None]
  - MYOCARDIAL INFARCTION [None]
  - NECK INJURY [None]
  - OEDEMA PERIPHERAL [None]
  - PLEURAL EFFUSION [None]
  - PNEUMONIA [None]
  - POLYTRAUMATISM [None]
  - RESPIRATORY FAILURE [None]
  - ROAD TRAFFIC ACCIDENT [None]
  - VENTRICULAR HYPOKINESIA [None]
